FAERS Safety Report 9092553 (Version 1)
Quarter: 2013Q1

REPORT INFORMATION
  Report Type: Spontaneous
  Country: ES (occurrence: ES)
  Receive Date: 20130201
  Receipt Date: 20130201
  Transmission Date: 20140127
  Serious: Yes (Other)
  Sender: FDA-Public Use
  Company Number: PHHY2013ES007034

PATIENT
  Age: 64 Year
  Sex: Female

DRUGS (1)
  1. AMANTADINE [Suspect]
     Indication: PARKINSON^S DISEASE
     Dosage: 100 MG, TID

REACTIONS (11)
  - Ocular toxicity [Unknown]
  - Corneal degeneration [Unknown]
  - Eye pain [Unknown]
  - Retinal disorder [Not Recovered/Not Resolved]
  - Corneal disorder [Not Recovered/Not Resolved]
  - Cataract nuclear [Unknown]
  - Corneal infiltrates [Recovered/Resolved]
  - Corneal endotheliitis [Unknown]
  - Corneal leukoma [Unknown]
  - Visual acuity reduced [Recovering/Resolving]
  - Corneal oedema [Recovered/Resolved]
